FAERS Safety Report 4949539-0 (Version None)
Quarter: 2006Q1

REPORT INFORMATION
  Report Type: 
  Country: None (occurrence: None)
  Receive Date: 20060316
  Receipt Date: 20060303
  Transmission Date: 20060701
  Serious: Yes (Death, Other)
  Sender: FDA-Public Use
  Company Number: MC200600184

PATIENT
  Age: 71 Year
  Sex: Male

DRUGS (1)
  1. ANGIOMAX [Suspect]
     Dosage: 0.75 MG/KG, BOLUS, IV BOLUS : 1.75 MG/KG, HR, INTRAVENOUS
     Route: 040
     Dates: start: 20060302, end: 20060302

REACTIONS (5)
  - ANURIA [None]
  - HAEMORRHAGE INTRACRANIAL [None]
  - HAEMORRHAGIC STROKE [None]
  - HYPERTENSION [None]
  - PROCEDURAL COMPLICATION [None]
